FAERS Safety Report 15261271 (Version 6)
Quarter: 2018Q4

REPORT INFORMATION
  Report Type: Report from Study
  Country: IL (occurrence: IL)
  Receive Date: 20180809
  Receipt Date: 20181205
  Transmission Date: 20190204
  Serious: Yes (Hospitalization, Other)
  Sender: FDA-Public Use
  Company Number: IL-SHIRE-IL201830244

PATIENT
  Sex: Female
  Weight: 63 kg

DRUGS (1)
  1. VPRIV [Suspect]
     Active Substance: VELAGLUCERASE ALFA
     Indication: GAUCHER^S DISEASE
     Dosage: 800 AND 1200 UNITS EVERY 2 WEEKS
     Route: 065
     Dates: start: 20110905

REACTIONS (3)
  - Blood pressure increased [Unknown]
  - Carotid artery stenosis [Recovering/Resolving]
  - Adenocarcinoma [Unknown]
